FAERS Safety Report 11876064 (Version 2)
Quarter: 2016Q1

REPORT INFORMATION
  Report Type: Spontaneous
  Country: US (occurrence: US)
  Receive Date: 20151229
  Receipt Date: 20160119
  Transmission Date: 20160526
  Serious: No
  Sender: FDA-Public Use
  Company Number: US-009507513-1512USA012672

PATIENT
  Sex: Male

DRUGS (2)
  1. SIMVASTATIN TABLETS, USP [Suspect]
     Active Substance: SIMVASTATIN
  2. MEVACOR [Suspect]
     Active Substance: LOVASTATIN
     Route: 048

REACTIONS (3)
  - Sexual dysfunction [Unknown]
  - Poor quality sleep [Unknown]
  - Headache [Unknown]
